FAERS Safety Report 8216329-5 (Version None)
Quarter: 2012Q1

REPORT INFORMATION
  Report Type: 
  Country: None (occurrence: None)
  Receive Date: 20120316
  Receipt Date: 20120309
  Transmission Date: 20120608
  Serious: Yes (Hospitalization, Other)
  Sender: FDA-Public Use
  Company Number: PHEH2006US02521

PATIENT
  Sex: Female
  Weight: 69 kg

DRUGS (17)
  1. VINORELBINE [Concomitant]
     Indication: CHEMOTHERAPY
     Dates: start: 20030501
  2. TAMOXIFEN CITRATE [Concomitant]
     Indication: BREAST CANCER
     Dates: end: 20000401
  3. CARBOPLATIN [Concomitant]
  4. TRASTUZUMAB [Concomitant]
     Indication: BREAST CANCER
  5. OXYCONTIN [Concomitant]
     Dosage: 10 MG, Q12H
  6. HERCEPTIN [Concomitant]
  7. AREDIA [Suspect]
     Indication: METASTASES TO BONE
     Dosage: 90MG, MONTHLY
     Route: 042
     Dates: start: 20001009
  8. ANASTROZOLE [Concomitant]
     Indication: CHEMOTHERAPY
  9. TAXANES [Concomitant]
     Indication: BREAST CANCER
  10. TAXOL [Concomitant]
     Indication: BREAST CANCER
  11. ZOMETA [Suspect]
     Indication: METASTASES TO BONE
     Dosage: 4MG, MONTHLY
     Route: 042
     Dates: start: 20030428, end: 20060101
  12. XELODA [Concomitant]
     Indication: BREAST CANCER
  13. ADRIAMYCIN PFS [Concomitant]
     Indication: BREAST CANCER
  14. CYTOXAN [Concomitant]
     Indication: BREAST CANCER
  15. TAXOTERE [Concomitant]
     Indication: BREAST CANCER
     Dosage: UNK, Q3 WEEKS
  16. OXYCODONE HCL [Concomitant]
     Dosage: 5 MG, Q4H
  17. DURAGESIC-100 [Concomitant]
     Dosage: 150 UG, UNK

REACTIONS (41)
  - INJURY [None]
  - OEDEMA MOUTH [None]
  - HEADACHE [None]
  - UROSEPSIS [None]
  - ALOPECIA [None]
  - HYPOKALAEMIA [None]
  - SYNCOPE [None]
  - BONE DISORDER [None]
  - SYSTEMIC INFLAMMATORY RESPONSE SYNDROME [None]
  - CHEST PAIN [None]
  - DYSPNOEA [None]
  - PAIN IN JAW [None]
  - PERICARDIAL EFFUSION [None]
  - DENTAL CARIES [None]
  - METASTASIS [None]
  - METASTASES TO CENTRAL NERVOUS SYSTEM [None]
  - TUMOUR MARKER INCREASED [None]
  - BACK PAIN [None]
  - INTERVERTEBRAL DISC PROTRUSION [None]
  - LEUKOPENIA [None]
  - HYPOTENSION [None]
  - FALL [None]
  - EJECTION FRACTION DECREASED [None]
  - ERYTHEMA [None]
  - NEOPLASM MALIGNANT [None]
  - TRICUSPID VALVE INCOMPETENCE [None]
  - ASCITES [None]
  - PYREXIA [None]
  - ORAL PAIN [None]
  - ORAL INFECTION [None]
  - NEOPLASM PROGRESSION [None]
  - ESCHERICHIA INFECTION [None]
  - URINARY TRACT INFECTION [None]
  - VISION BLURRED [None]
  - OSTEONECROSIS OF JAW [None]
  - PAIN [None]
  - EMOTIONAL DISTRESS [None]
  - TOOTHACHE [None]
  - MITRAL VALVE INCOMPETENCE [None]
  - OSTEOARTHRITIS [None]
  - PLEURAL EFFUSION [None]
